FAERS Safety Report 4431769-8 (Version None)
Quarter: 2004Q3

REPORT INFORMATION
  Report Type: 
  Country: None (occurrence: None)
  Receive Date: 20040818
  Receipt Date: 20040802
  Transmission Date: 20050211
  Serious: Yes (Hospitalization)
  Sender: FDA-Public Use
  Company Number: USA040874284

PATIENT

DRUGS (2)
  1. ALIMTA [Suspect]
     Indication: MESOTHELIOMA
  2. CISPLATIN [Concomitant]

REACTIONS (1)
  - PULMONARY EMBOLISM [None]
